FAERS Safety Report 11945435 (Version 1)
Quarter: 2016Q1

REPORT INFORMATION
  Report Type: Spontaneous
  Country: US (occurrence: US)
  Receive Date: 20160125
  Receipt Date: 20160125
  Transmission Date: 20160526
  Serious: Yes (Other)
  Sender: FDA-Public Use
  Company Number: US-PFIZER INC-2016034007

PATIENT
  Sex: Female

DRUGS (2)
  1. CYTOMEL [Suspect]
     Active Substance: LIOTHYRONINE SODIUM
     Dosage: UNK
  2. LEVOXYL [Interacting]
     Active Substance: LEVOTHYROXINE SODIUM
     Dosage: UNK

REACTIONS (8)
  - Limb discomfort [Unknown]
  - Weight increased [Unknown]
  - Drug interaction [Unknown]
  - Stress [Unknown]
  - Hodgkin^s disease [Unknown]
  - Uterine leiomyoma [Unknown]
  - Intentional product misuse [Unknown]
  - Basedow^s disease [Unknown]
